FAERS Safety Report 10467062 (Version 1)
Quarter: 2014Q3

REPORT INFORMATION
  Report Type: Report from Study
  Country: US (occurrence: US)
  Receive Date: 20140922
  Receipt Date: 20140922
  Transmission Date: 20150326
  Serious: Yes (Other)
  Sender: FDA-Public Use
  Company Number: US-SA-2014SA125222

PATIENT

DRUGS (2)
  1. GEMTUZUMAB OZOGAMICIN [Suspect]
     Active Substance: GEMTUZUMAB OZOGAMICIN
     Indication: BONE MARROW CONDITIONING REGIMEN
     Dosage: ON DAYS 1, 4 AND 7
     Route: 041
  2. CLOFARABINE [Suspect]
     Active Substance: CLOFARABINE
     Indication: BONE MARROW CONDITIONING REGIMEN
     Dosage: DOSE 10-40 MG/M2 ON DAYS 1-5; ADMINISTERED OVER 1 HOUR
     Route: 041

REACTIONS (8)
  - Haematotoxicity [Unknown]
  - Renal failure acute [Unknown]
  - Uterine haemorrhage [Unknown]
  - Acidosis [Unknown]
  - Hepatotoxicity [Unknown]
  - Left ventricular dysfunction [Unknown]
  - Febrile neutropenia [Unknown]
  - Pneumonitis [Unknown]
